FAERS Safety Report 15789869 (Version 3)
Quarter: 2019Q2

REPORT INFORMATION
  Report Type: Report from Study
  Country: CA (occurrence: CA)
  Receive Date: 20190104
  Receipt Date: 20190628
  Transmission Date: 20190711
  Serious: Yes (Hospitalization)
  Sender: FDA-Public Use
  Company Number: CA-TAIHO ONCOLOGY  INC-EU-2018-02556

PATIENT
  Age: 59 Year
  Sex: Male
  Weight: 59.09 kg

DRUGS (12)
  1. GLICLAZIDE [Concomitant]
     Active Substance: GLICLAZIDE
     Dosage: NI
  2. GABAPENTIN. [Concomitant]
     Active Substance: GABAPENTIN
     Dosage: NI
  3. RAMIPRIL. [Concomitant]
     Active Substance: RAMIPRIL
     Dosage: NI
  4. BISOPROLOL [Concomitant]
     Active Substance: BISOPROLOL
     Dosage: NI
  5. HYDROMORPHONE [Concomitant]
     Active Substance: HYDROMORPHONE
     Dosage: NI
  6. LONSURF [Suspect]
     Active Substance: TIPIRACIL HYDROCHLORIDE\TRIFLURIDINE
     Indication: COLORECTAL CANCER METASTATIC
     Dosage: CYCLE 1
     Route: 048
     Dates: start: 20181005, end: 20181022
  7. ASA [Concomitant]
     Active Substance: ASPIRIN
     Dosage: NI
  8. LOSEC [Concomitant]
     Active Substance: OMEPRAZOLE
     Dosage: NI
  9. CLONIDINE. [Concomitant]
     Active Substance: CLONIDINE
     Dosage: NI
  10. LIPITOR [Concomitant]
     Active Substance: ATORVASTATIN CALCIUM
     Dosage: NI
  11. METFORMIN [Concomitant]
     Active Substance: METFORMIN HYDROCHLORIDE
     Dosage: NI
  12. NIFEDIPINE. [Concomitant]
     Active Substance: NIFEDIPINE
     Dosage: NI

REACTIONS (2)
  - Disease progression [Unknown]
  - Myocardial infarction [Recovered/Resolved]

NARRATIVE: CASE EVENT DATE: 201810
